FAERS Safety Report 9379050 (Version 1)
Quarter: 2013Q3

REPORT INFORMATION
  Report Type: Spontaneous
  Country: FR (occurrence: FR)
  Receive Date: 20130702
  Receipt Date: 20130702
  Transmission Date: 20140515
  Serious: Yes (Other)
  Sender: FDA-Public Use
  Company Number: FR-NOVOPROD-379840

PATIENT
  Age: 14 Year
  Sex: Male
  Weight: 68 kg

DRUGS (3)
  1. NORDITROPIN NORDIFLEX [Suspect]
     Indication: GROWTH HORMONE DEFICIENCY
     Dosage: 1.5 MG, QD
     Route: 058
     Dates: start: 20130510, end: 20130517
  2. ANDROTARDYL [Concomitant]
     Indication: SECONDARY HYPOGONADISM
     Dosage: 50 MG, PER 3 WEEKS
     Route: 030
     Dates: start: 20130502
  3. ZYMADUO [Concomitant]
     Indication: SECONDARY HYPOGONADISM
     Dosage: 200.000 IU PER THREE MONTHS
     Route: 048
     Dates: start: 20130502

REACTIONS (3)
  - Dermatitis exfoliative [Recovered/Resolved]
  - Fluid retention [Recovered/Resolved]
  - Oedema peripheral [Recovered/Resolved]
